FAERS Safety Report 8267578-1 (Version None)
Quarter: 2012Q2

REPORT INFORMATION
  Report Type: 
  Country: None (occurrence: None)
  Receive Date: 20120409
  Receipt Date: 20120403
  Transmission Date: 20120825
  Serious: Yes (Hospitalization)
  Sender: FDA-Public Use
  Company Number: PHHY2012PK028589

PATIENT
  Age: 60 Year
  Sex: Female

DRUGS (3)
  1. ZOLEDRONOC ACID [Suspect]
     Indication: OSTEOPOROSIS
     Route: 042
  2. ZOLEDRONOC ACID [Suspect]
     Route: 042
     Dates: start: 20110423
  3. CALCIUM CARBONATE [Concomitant]
     Indication: OSTEOPOROSIS

REACTIONS (2)
  - FEMUR FRACTURE [None]
  - FALL [None]
